FAERS Safety Report 24267203 (Version 2)
Quarter: 2024Q4

REPORT INFORMATION
  Report Type: Report from Study
  Country: GB (occurrence: GB)
  Receive Date: 20240830
  Receipt Date: 20241004
  Transmission Date: 20250114
  Serious: Yes (Hospitalization, Other)
  Sender: JOHNSON AND JOHNSON
  Company Number: GB-JNJFOC-20231210461

PATIENT
  Age: 75 Year
  Sex: Male

DRUGS (4)
  1. ERLEADA [Suspect]
     Active Substance: APALUTAMIDE
     Indication: Prostate cancer
     Route: 048
     Dates: start: 20231117, end: 20231206
  2. ERLEADA [Suspect]
     Active Substance: APALUTAMIDE
     Route: 048
  3. ERLEADA [Suspect]
     Active Substance: APALUTAMIDE
     Route: 048
     Dates: start: 20231117
  4. ERLEADA [Suspect]
     Active Substance: APALUTAMIDE
     Route: 048
     Dates: end: 202408

REACTIONS (13)
  - Prostate cancer [Unknown]
  - Arthralgia [Not Recovered/Not Resolved]
  - Metastatic neoplasm [Unknown]
  - Prostatic specific antigen increased [Not Recovered/Not Resolved]
  - Rash pruritic [Recovered/Resolved]
  - Liver function test abnormal [Recovered/Resolved]
  - Back pain [Recovered/Resolved]
  - Depressed mood [Recovering/Resolving]
  - Mobility decreased [Recovering/Resolving]
  - Constipation [Recovering/Resolving]
  - Urinary tract infection [Recovered/Resolved]
  - Cough [Unknown]
  - Musculoskeletal chest pain [Recovering/Resolving]

NARRATIVE: CASE EVENT DATE: 20231101
